FAERS Safety Report 5801390-5 (Version None)
Quarter: 2008Q3

REPORT INFORMATION
  Report Type: 
  Country: None (occurrence: None)
  Receive Date: 20080707
  Receipt Date: 20080627
  Transmission Date: 20090109
  Serious: No
  Sender: FDA-Public Use
  Company Number: AU-PFIZER INC-2008043928

PATIENT
  Sex: Female

DRUGS (2)
  1. SALAZOPYRIN [Suspect]
     Indication: RHEUMATOID ARTHRITIS
  2. METHOBLASTIN [Suspect]
     Indication: RHEUMATOID ARTHRITIS

REACTIONS (1)
  - NO ADVERSE EVENT [None]
